FAERS Safety Report 6439615-8 (Version None)
Quarter: 2009Q4

REPORT INFORMATION
  Report Type: 
  Country: None (occurrence: None)
  Receive Date: 20091113
  Receipt Date: 20091109
  Transmission Date: 20100525
  Serious: Yes (Hospitalization)
  Sender: FDA-Public Use
  Company Number: D0063754A

PATIENT
  Sex: Female

DRUGS (6)
  1. ELMENDOS [Suspect]
     Dosage: 200MG PER DAY
     Route: 048
     Dates: start: 20070813, end: 20071130
  2. INVEGA [Suspect]
     Route: 048
     Dates: start: 20070814, end: 20070829
  3. STANGYL [Suspect]
     Route: 048
     Dates: start: 20070813, end: 20071130
  4. TRUXAL [Suspect]
     Dosage: 100MG PER DAY
     Route: 048
     Dates: start: 20070813, end: 20070819
  5. XIMOVAN [Suspect]
     Dosage: 7.5MG PER DAY
     Route: 048
     Dates: start: 20070813, end: 20070828
  6. ZELDOX [Suspect]
     Dosage: 40MG PER DAY
     Route: 048
     Dates: start: 20070813, end: 20070819

REACTIONS (1)
  - GALACTORRHOEA [None]
